FAERS Safety Report 12419423 (Version 1)
Quarter: 2016Q2

REPORT INFORMATION
  Report Type: Spontaneous
  Country: US (occurrence: US)
  Receive Date: 20160531
  Receipt Date: 20160531
  Transmission Date: 20160815
  Serious: No
  Sender: FDA-Public Use
  Company Number: US-TORRENT-00000946

PATIENT
  Sex: Male

DRUGS (1)
  1. LOSARTAN POTASSIUM (100 MG) + HCTZ (12.5M G) [Suspect]
     Active Substance: HYDROCHLOROTHIAZIDE\LOSARTAN POTASSIUM
     Indication: PRODUCT USED FOR UNKNOWN INDICATION
     Dosage: LOSARTAN POTASSIUM 100MG AND HYDROCHLOROTHIAZIDE 12.5MG
     Route: 048

REACTIONS (2)
  - Incorrect product storage [None]
  - Product odour abnormal [Unknown]
